FAERS Safety Report 7962158-7 (Version None)
Quarter: 2011Q4

REPORT INFORMATION
  Report Type: 
  Country: None (occurrence: None)
  Receive Date: 20111206
  Receipt Date: 20111122
  Transmission Date: 20120403
  Serious: Yes (Disabling, Other)
  Sender: FDA-Public Use
  Company Number: FK201102809

PATIENT
  Age: 38 Year
  Sex: Female

DRUGS (3)
  1. XYLOCAINE [Suspect]
     Indication: INJECTION
     Dosage: 3.1 RATIO WITH DEXAMETHASONE, INTRADERMAL)
     Route: 023
     Dates: start: 20091118
  2. KENALOG-40 [Suspect]
     Indication: INJECTION
     Dosage: INTRADERMAL
     Route: 023
     Dates: start: 20091118
  3. DEXAMETHASONE SODIUM PHOSPHATE [Suspect]
     Indication: STEROID THERAPY
     Dosage: 3.1 RATIO WITH 2.0 CC 1`% XYLOCAINE, INTRADERMAL
     Route: 023
     Dates: start: 20091118

REACTIONS (8)
  - PERIPHERAL COLDNESS [None]
  - DYSSTASIA [None]
  - WALKING DISABILITY [None]
  - LIPOATROPHY [None]
  - INJECTION SITE ERYTHEMA [None]
  - PARAESTHESIA [None]
  - INJECTION SITE REACTION [None]
  - PRODUCT QUALITY ISSUE [None]
